FAERS Safety Report 17100791 (Version 1)
Quarter: 2019Q4

REPORT INFORMATION
  Report Type: Spontaneous
  Country: US (occurrence: US)
  Receive Date: 20191202
  Receipt Date: 20191202
  Transmission Date: 20200122
  Serious: No
  Sender: FDA-Public Use
  Company Number: US-SA-2019SA327626

PATIENT
  Sex: Female

DRUGS (1)
  1. GOLD BOND ULTIMATE CRACKED SKIN FILL AND PROTECT [Suspect]
     Active Substance: PETROLATUM

REACTIONS (2)
  - Wound [Unknown]
  - Pain [Unknown]
